FAERS Safety Report 5653022-7 (Version None)
Quarter: 2008Q1

REPORT INFORMATION
  Report Type: 
  Country: None (occurrence: None)
  Receive Date: 20080306
  Receipt Date: 20080225
  Transmission Date: 20080703
  Serious: Yes (Death, Life-Threatening)
  Sender: FDA-Public Use
  Company Number: CA-NOVOPROD-257240

PATIENT
  Sex: Male
  Weight: 89 kg

DRUGS (47)
  1. NOVOSEVEN [Suspect]
     Indication: TRAUMATIC HAEMORRHAGE
     Dosage: 3 DOSES
     Route: 042
     Dates: start: 20060923, end: 20060923
  2. ANCEF [Concomitant]
     Dosage: 1 G, QD
     Route: 042
     Dates: start: 20060923
  3. GENTAMYCIN                         /00047101/ [Concomitant]
     Dosage: 80 MG, QD
     Route: 042
     Dates: start: 20060923
  4. RANITIDINE [Concomitant]
     Dosage: 50 MG, QD
     Route: 042
     Dates: start: 20060923, end: 20061003
  5. RANITIDINE [Concomitant]
     Dosage: 150 MG, QD
     Route: 048
     Dates: start: 20061003, end: 20061011
  6. ATROVENT [Concomitant]
     Dosage: 8 PUFFS
     Dates: start: 20060923, end: 20061003
  7. VENTOLIN [Concomitant]
     Dosage: 8 PUFFS
     Dates: start: 20060923, end: 20061003
  8. TYLENOL (CAPLET) [Concomitant]
     Dosage: 500 MG, QD
     Route: 048
     Dates: start: 20060923, end: 20060923
  9. TYLENOL (CAPLET) [Concomitant]
     Dosage: 1000 MG, QD
     Dates: start: 20060923, end: 20061011
  10. GABAPENTIN [Concomitant]
     Indication: PROPHYLAXIS
     Dosage: 100 MG, QD
     Route: 048
     Dates: start: 20060923, end: 20061011
  11. GABAPENTIN [Concomitant]
     Dosage: 300 MG, UNK
     Dates: start: 20060923, end: 20060928
  12. SUCCINYLCHOLINE CHLORIDE [Concomitant]
     Dosage: 100 MG, QD
     Route: 042
     Dates: start: 20060923
  13. NIACIN [Concomitant]
     Dosage: UNK, UNK
     Route: 042
     Dates: start: 20060923
  14. FENTANYL [Concomitant]
     Route: 042
     Dates: start: 20060923, end: 20060926
  15. PENTASPAN [Concomitant]
     Dosage: 500 ML, UNK
     Route: 042
  16. MAGNESIUM SULFATE [Concomitant]
     Dosage: UNK, UNK
     Route: 042
     Dates: start: 20060923
  17. LEVOPHED [Concomitant]
     Dosage: 300 MG, QD
     Dates: start: 20060924, end: 20060924
  18. VASOPRESSIN [Concomitant]
     Dosage: 24 IU, QOD
     Dates: start: 20060924, end: 20060924
  19. ZANTAC 150 [Concomitant]
     Dosage: 150 MG, QD
     Route: 048
     Dates: start: 20061002
  20. FRAGMIN [Concomitant]
     Dosage: 10000 UNITS
     Route: 058
     Dates: start: 20061003, end: 20061009
  21. COLACE [Concomitant]
     Dosage: 200 MG, QD
     Route: 048
     Dates: start: 20061004, end: 20061011
  22. FLAGYL [Concomitant]
     Indication: PROPHYLAXIS
     Dosage: 500 MG, QD
     Route: 042
     Dates: start: 20060923
  23. CIPRO                              /00697201/ [Concomitant]
     Dosage: 400 MG, QD
     Route: 042
     Dates: start: 20061005, end: 20061012
  24. DILAUDID [Concomitant]
     Dosage: .1 MG, QD
     Route: 042
     Dates: start: 20061002, end: 20061012
  25. MORPHINE [Concomitant]
     Dosage: 1-5 MG
     Route: 042
     Dates: start: 20061005
  26. VANCOMYCIN [Concomitant]
     Dosage: 1 G, UNK
     Route: 042
     Dates: start: 20061001, end: 20061012
  27. DALTEPARIN SODIUM [Concomitant]
     Dosage: 10000 IU, QD
     Route: 058
     Dates: start: 20061003
  28. CELEBREX [Concomitant]
     Dosage: 200 MG, QD
     Route: 048
     Dates: start: 20061002, end: 20061011
  29. SPIRONOLACTONE [Concomitant]
     Dosage: 100 MG, UNK
     Route: 048
     Dates: start: 20061007, end: 20061011
  30. DILANID [Concomitant]
     Dosage: .2 MG, UNK
     Route: 042
     Dates: start: 20061002
  31. LASIX [Concomitant]
     Dosage: 100 MG, UNK
     Route: 042
     Dates: start: 20061006, end: 20061007
  32. BACLOFEN [Concomitant]
     Dosage: 15 MG, UNK
     Route: 048
     Dates: start: 20061007, end: 20061007
  33. CALCIUM CHLORIDE                   /00203801/ [Concomitant]
     Dosage: 1 G, QD
     Route: 042
     Dates: start: 20061007, end: 20061007
  34. POTASSIUM CHLORIDE [Concomitant]
     Route: 042
     Dates: start: 20060925, end: 20060929
  35. POTASSIUM CHLORIDE [Concomitant]
     Dates: start: 20061006, end: 20061007
  36. PANTOLOC                           /01263201/ [Concomitant]
     Indication: PROPHYLAXIS
     Dosage: 40 MG, UNK
     Route: 042
     Dates: start: 20060924, end: 20061002
  37. DOCUSATE [Concomitant]
     Dosage: 200 MG, UNK
     Route: 048
     Dates: start: 20060925, end: 20061004
  38. MAGNESIUMSULFAT [Concomitant]
     Dosage: 2 G, QD
     Route: 042
     Dates: start: 20060923, end: 20060927
  39. VESSEL                             /00111601/ [Concomitant]
     Dosage: 2 MG, QD
     Route: 042
     Dates: start: 20060928
  40. HEPARIN [Concomitant]
     Dosage: 25.000 UNITS, QD
     Route: 042
     Dates: start: 20060926
  41. CEFTRIAXONE [Concomitant]
     Indication: PROPHYLAXIS
     Dosage: 1 G, QD
     Route: 042
     Dates: start: 20060923, end: 20060928
  42. HYDROCORTISON                      /00028601/ [Concomitant]
     Dosage: 60 MG, QD
     Route: 042
     Dates: start: 20060923
  43. HYDROCORTISON                      /00028601/ [Concomitant]
     Dosage: 50 MG, UNK
     Dates: start: 20060924, end: 20060928
  44. PROPOFOL [Concomitant]
     Route: 042
  45. SODIUM PHOSPHATES [Concomitant]
     Route: 042
     Dates: start: 20060924, end: 20060926
  46. LIPITOR [Concomitant]
     Dosage: 80 MG, QD
     Route: 042
     Dates: start: 20061008, end: 20061011
  47. ROCURONIUM BROMIDE [Concomitant]
     Dosage: 50 MG, UNK
     Route: 042
     Dates: start: 20061011, end: 20061011

REACTIONS (7)
  - ACUTE RESPIRATORY DISTRESS SYNDROME [None]
  - ANOXIC ENCEPHALOPATHY [None]
  - HAEMOGLOBIN DECREASED [None]
  - PLATELET COUNT DECREASED [None]
  - PULMONARY EMBOLISM [None]
  - TACHYPNOEA [None]
  - VENA CAVA THROMBOSIS [None]
